FAERS Safety Report 9684814 (Version 2)
Quarter: 2013Q4

REPORT INFORMATION
  Report Type: Report from Study
  Country: BR (occurrence: BR)
  Receive Date: 20131112
  Receipt Date: 20131209
  Transmission Date: 20140711
  Serious: Yes (Hospitalization, Other)
  Sender: FDA-Public Use
  Company Number: PHHY2013BR128783

PATIENT
  Sex: Female
  Weight: 102 kg

DRUGS (7)
  1. TEGRETOL [Suspect]
     Indication: FACIAL PAIN
     Dosage: 2 DF, DAILY (USED WHEN LACK OF TEGRETOL CR)
     Route: 048
  2. TEGRETOL [Suspect]
     Indication: MYALGIA
  3. TEGRETOL CR [Suspect]
     Indication: FACIAL PAIN
     Dosage: 2 DF, DAILY
     Route: 048
  4. TEGRETOL CR [Suspect]
     Indication: MYALGIA
  5. GABAPENTIN [Concomitant]
     Dosage: UNK UKN, UNK
  6. LOSARTAN [Concomitant]
     Indication: HYPERTENSION
     Dosage: 2 DF, DAILY
     Route: 048
  7. MERITOR [Concomitant]
     Indication: DIABETES MELLITUS
     Dosage: 2 DF, DAILY
     Route: 048

REACTIONS (7)
  - Cerebrovascular accident [Recovered/Resolved]
  - Gait disturbance [Not Recovered/Not Resolved]
  - Osteoarthritis [Not Recovered/Not Resolved]
  - Trigeminal neuralgia [Recovered/Resolved]
  - Back pain [Not Recovered/Not Resolved]
  - Facial pain [Not Recovered/Not Resolved]
  - Myalgia [Not Recovered/Not Resolved]
